FAERS Safety Report 8089095-4 (Version None)
Quarter: 2012Q1

REPORT INFORMATION
  Report Type: 
  Country: None (occurrence: None)
  Receive Date: 20120128
  Receipt Date: 20110627
  Transmission Date: 20120608
  Serious: No
  Sender: FDA-Public Use
  Company Number: US-ABBOTT-11P-163-0834500-00

PATIENT
  Age: 30 Year
  Sex: Female

DRUGS (4)
  1. CYCLOBENZAPRINE [Concomitant]
     Indication: PRODUCT USED FOR UNKNOWN INDICATION
  2. VITAMIN D [Concomitant]
     Indication: PRODUCT USED FOR UNKNOWN INDICATION
     Dosage: WEEKLY
  3. IBUPROFEN [Concomitant]
     Indication: HEADACHE
  4. HUMIRA [Suspect]
     Indication: PSORIASIS
     Dates: start: 20110528

REACTIONS (1)
  - INJECTION SITE PAIN [None]
